FAERS Safety Report 22623505 (Version 1)
Quarter: 2023Q2

REPORT INFORMATION
  Report Type: Spontaneous
  Country: CN (occurrence: CN)
  Receive Date: 20230621
  Receipt Date: 20230621
  Transmission Date: 20230721
  Serious: Yes (Hospitalization, Other)
  Sender: FDA-Public Use
  Company Number: None

PATIENT
  Age: 26 Year
  Sex: Male
  Weight: 58 kg

DRUGS (9)
  1. CYCLOPHOSPHAMIDE [Suspect]
     Active Substance: CYCLOPHOSPHAMIDE
     Indication: T-cell type acute leukaemia
     Dosage: 500 MG, ONCE IN 2 DAYS, DILUTED WITH 0.9% SODIUM CHLORIDE 250 ML
     Route: 041
     Dates: start: 20230603, end: 20230606
  2. SODIUM CHLORIDE [Suspect]
     Active Substance: SODIUM CHLORIDE
     Indication: Medication dilution
     Dosage: 250 ML, ONCE IN 2 DAYS, DOSAGE FORM: INJECTION, STRENGTH 0.9%, USED TO DILUTE CYCLOPHOSPHAMIDE 500 M
     Route: 041
     Dates: start: 20230603, end: 20230606
  3. SODIUM CHLORIDE [Suspect]
     Active Substance: SODIUM CHLORIDE
     Dosage: 180 ML, QD, DOSAGE FORM: INJECTION, USED TO DILUTE VINCRISTINE SULFATE 2 MG
     Route: 042
     Dates: start: 20230602
  4. SODIUM CHLORIDE [Suspect]
     Active Substance: SODIUM CHLORIDE
     Dosage: 27 ML, QD, DOSAGE FORM: INJECTION, USED TO DILUTE METHOTREXATE 10 MG+CYTARABINE HYDROCHLORIDE 50 MG
     Route: 037
     Dates: start: 20230602
  5. DEXTROSE [Suspect]
     Active Substance: DEXTROSE\DEXTROSE MONOHYDRATE
     Indication: Medication dilution
     Dosage: 500 ML, QD, DOSAGE FORM: INJECTION, ROUTE: INTRAPUMP, USED TO DILUTE EPIRUBICIN HYDROCHLORIDE 100 MG
     Route: 050
     Dates: start: 20230602
  6. METHOTREXATE [Suspect]
     Active Substance: METHOTREXATE
     Indication: T-cell type acute leukaemia
     Dosage: 10 MG, QD, ALONG WITH CYTARABINE HYDROCHLORIDE 50 MG DILUTED WITH SODIUM CHLORIDE 27 ML
     Route: 037
     Dates: start: 20230602
  7. EPIRUBICIN HYDROCHLORIDE [Suspect]
     Active Substance: EPIRUBICIN HYDROCHLORIDE
     Indication: T-cell type acute leukaemia
     Dosage: 100 MG, QD, ROUTE: INTRAPUMP, DILUTED WITH GLUCOSE 500 ML
     Route: 050
     Dates: start: 20230602
  8. CYTARABINE HYDROCHLORIDE [Suspect]
     Active Substance: CYTARABINE HYDROCHLORIDE
     Indication: T-cell type acute leukaemia
     Dosage: 50 MG, QD, ALONG WITH METHOTREXATE 10 MG DILUTED WITH SODIUM CHLORIDE 27 ML
     Route: 037
     Dates: start: 20230602
  9. VINCRISTINE SULFATE [Suspect]
     Active Substance: VINCRISTINE SULFATE
     Indication: T-cell type acute leukaemia
     Dosage: 2 MG, QD, DILUTED WITH SODIUM CHLORIDE 180 ML
     Route: 042
     Dates: start: 20230602

REACTIONS (1)
  - Myelosuppression [Unknown]

NARRATIVE: CASE EVENT DATE: 20230611
